FAERS Safety Report 8813690 (Version 1)
Quarter: 2012Q4

REPORT INFORMATION
  Report Type: 
  Country: SE (occurrence: SE)
  Receive Date: 20120928
  Receipt Date: 20120928
  Transmission Date: 20130627
  Serious: Yes (Disabling)
  Sender: FDA-Public Use
  Company Number: SE-MERCK-1209SWE009994

PATIENT
  Age: 27 Year
  Sex: Male

DRUGS (2)
  1. ELOCON [Suspect]
     Dosage: Frequency: ad lib
     Dates: start: 2010, end: 20120701
  2. DERMOVAT [Suspect]
     Dosage: Frequency: ad lib
     Dates: start: 2010, end: 20120701

REACTIONS (2)
  - Eczema [Recovered/Resolved with Sequelae]
  - Adrenal insufficiency [Recovered/Resolved with Sequelae]
